FAERS Safety Report 14616867 (Version 2)
Quarter: 2018Q1

REPORT INFORMATION
  Report Type: Report from Study
  Country: KR (occurrence: KR)
  Receive Date: 20180309
  Receipt Date: 20180316
  Transmission Date: 20180509
  Serious: Yes (Death, Hospitalization)
  Sender: FDA-Public Use
  Company Number: KR-EISAI MEDICAL RESEARCH-EC-2018-036697

PATIENT
  Age: 57 Year
  Sex: Female
  Weight: 45 kg

DRUGS (19)
  1. HALAVEN [Suspect]
     Active Substance: ERIBULIN MESYLATE
     Indication: BREAST CANCER
     Route: 041
     Dates: start: 20150523, end: 20150523
  2. HALAVEN [Suspect]
     Active Substance: ERIBULIN MESYLATE
     Route: 041
     Dates: start: 20150529, end: 20150529
  3. VESICARE [Concomitant]
     Active Substance: SOLIFENACIN SUCCINATE
  4. HALAVEN [Suspect]
     Active Substance: ERIBULIN MESYLATE
     Route: 041
     Dates: start: 20150626, end: 20150703
  5. HALAVEN [Suspect]
     Active Substance: ERIBULIN MESYLATE
     Route: 041
     Dates: start: 20150717, end: 20170824
  6. TOPISOL MILK LOTION [Concomitant]
  7. DESOWEN LOTION 0.05% [Concomitant]
  8. REMICUT SR [Concomitant]
  9. UCERAX TAB [Concomitant]
  10. DIABEX TAB [Concomitant]
  11. ALLEGRA TAB [Concomitant]
  12. HARNAL D TAB [Concomitant]
  13. ILYANG EPINASTINE [Concomitant]
  14. LANTUS [Concomitant]
     Active Substance: INSULIN GLARGINE
  15. AMARYL TAB [Concomitant]
  16. APIDRA INJ [Concomitant]
  17. TRAJENTA TAB [Concomitant]
  18. HYDROCORTISONE JR OINT [Concomitant]
  19. CIPROBAY TAB [Concomitant]

REACTIONS (4)
  - Neutrophil count decreased [Recovered/Resolved]
  - Malignant neoplasm progression [Fatal]
  - Diabetes mellitus [Recovered/Resolved]
  - Neurogenic bladder [Not Recovered/Not Resolved]

NARRATIVE: CASE EVENT DATE: 20150606
